FAERS Safety Report 22181414 (Version 6)
Quarter: 2025Q4

REPORT INFORMATION
  Report Type: Report from Study
  Country: JP (occurrence: JP)
  Receive Date: 20230406
  Receipt Date: 20251027
  Transmission Date: 20260117
  Serious: Yes (Other)
  Sender: ABBVIE
  Company Number: JP-TAKEDA-2021TJP003634

PATIENT
  Age: 36 Year
  Sex: Male

DRUGS (3)
  1. LEUPROLIDE ACETATE [Suspect]
     Active Substance: LEUPROLIDE ACETATE
     Indication: Bulbospinal muscular atrophy congenital
     Dosage: FORM STRENGTH: 11.25 MILLIGRAM, Q3MONTHS
     Route: 058
     Dates: start: 20190222, end: 20221223
  2. LEUPROLIDE ACETATE [Suspect]
     Active Substance: LEUPROLIDE ACETATE
     Dosage: FORM STRENGTH: 11.25 MILLIGRAM, Q3MONTHS
     Route: 058
     Dates: start: 20230707
  3. URSO [Concomitant]
     Active Substance: URSODIOL
     Indication: Hepatic steatosis
     Dosage: FORM STRENGTH: 150 MILLIGRAM
     Route: 065

REACTIONS (3)
  - Diabetes mellitus [Recovering/Resolving]
  - Hepatic function abnormal [Recovered/Resolved]
  - Depression [Recovering/Resolving]

NARRATIVE: CASE EVENT DATE: 20190517
